FAERS Safety Report 9535622 (Version 1)
Quarter: 2013Q3

REPORT INFORMATION
  Report Type: Spontaneous
  Country: NL (occurrence: NL)
  Receive Date: 20130919
  Receipt Date: 20130919
  Transmission Date: 20140515
  Serious: Yes (Other)
  Sender: FDA-Public Use
  Company Number: NL-RANBAXY-2013R1-73236

PATIENT
  Age: 35 Year
  Sex: Male

DRUGS (1)
  1. NORTRIPTYLINE [Suspect]
     Indication: DEPRESSION
     Dosage: 150 MG, QD
     Route: 065

REACTIONS (1)
  - Electrocardiogram QRS complex prolonged [Recovering/Resolving]
